FAERS Safety Report 17195087 (Version 1)
Quarter: 2019Q4

REPORT INFORMATION
  Report Type: Spontaneous
  Country: US (occurrence: US)
  Receive Date: 20191202
  Receipt Date: 20191202
  Transmission Date: 20200122
  Serious: Yes (Other)
  Sender: FDA-Public Use
  Company Number: None

PATIENT
  Age: 4 Year
  Sex: Female
  Weight: 18.6 kg

DRUGS (1)
  1. RANITIDINE SYRUP ORAL SOLUTION 15 MG/ML [Suspect]
     Active Substance: RANITIDINE
     Indication: ABDOMINAL PAIN
     Dosage: ?          QUANTITY:15 MG MILLIGRAM(S);?
     Route: 048
     Dates: start: 201909, end: 20191015

REACTIONS (7)
  - Insomnia [None]
  - Restlessness [None]
  - Vomiting [None]
  - Psychomotor hyperactivity [None]
  - Euphoric mood [None]
  - Abdominal pain [None]
  - Mood altered [None]

NARRATIVE: CASE EVENT DATE: 20190905
